FAERS Safety Report 9869147 (Version 1)
Quarter: 2014Q1

REPORT INFORMATION
  Report Type: Spontaneous
  Country: US (occurrence: US)
  Receive Date: 20140205
  Receipt Date: 20140205
  Transmission Date: 20141002
  Serious: No
  Sender: FDA-Public Use
  Company Number: US-BIOGENIDEC-2014BI010741

PATIENT
  Age: 59 Year
  Sex: Female

DRUGS (1)
  1. AVONEX [Suspect]
     Indication: MULTIPLE SCLEROSIS
     Route: 030
     Dates: start: 20130301

REACTIONS (6)
  - Contusion [Unknown]
  - Fall [Recovered/Resolved]
  - Pollakiuria [Unknown]
  - Hypoaesthesia [Unknown]
  - Glossodynia [Unknown]
  - Multiple sclerosis relapse [Unknown]
